FAERS Safety Report 7462629-6 (Version None)
Quarter: 2011Q2

REPORT INFORMATION
  Report Type: 
  Country: None (occurrence: None)
  Receive Date: 20110506
  Receipt Date: 20110426
  Transmission Date: 20111010
  Serious: Yes (Hospitalization, Other)
  Sender: FDA-Public Use
  Company Number: PHHY2011CA26487

PATIENT
  Sex: Male

DRUGS (2)
  1. CHEMOTHERAPEUTICS [Concomitant]
     Dosage: UNK
  2. CLOZARIL [Suspect]
     Dates: start: 20000324

REACTIONS (17)
  - DIFFUSE LARGE B-CELL LYMPHOMA [None]
  - AGRANULOCYTOSIS [None]
  - AGITATION [None]
  - RED BLOOD CELL COUNT DECREASED [None]
  - NEOPLASM MALIGNANT [None]
  - SCHIZOPHRENIA [None]
  - MENTAL DISORDER [None]
  - LYMPHOCYTE COUNT DECREASED [None]
  - LYMPHOMA [None]
  - HAEMATOCRIT DECREASED [None]
  - ANION GAP DECREASED [None]
  - WHITE BLOOD CELL COUNT DECREASED [None]
  - BLOOD CREATINE PHOSPHOKINASE INCREASED [None]
  - NEUTROPHIL COUNT DECREASED [None]
  - RED CELL DISTRIBUTION WIDTH INCREASED [None]
  - HAEMOGLOBIN DECREASED [None]
  - NEUTROPENIA [None]
